FAERS Safety Report 25840515 (Version 1)
Quarter: 2025Q3

REPORT INFORMATION
  Report Type: Spontaneous
  Country: CN (occurrence: CN)
  Receive Date: 20250924
  Receipt Date: 20250924
  Transmission Date: 20251021
  Serious: Yes (Hospitalization, Other)
  Sender: GLAXOSMITHKLINE
  Company Number: CN-GSK-CN2025CHI118257

PATIENT
  Age: 19 Year
  Sex: Female

DRUGS (5)
  1. LAMOTRIGINE [Suspect]
     Active Substance: LAMOTRIGINE
     Indication: Product used for unknown indication
     Dosage: 2 DF, QD
     Dates: start: 20250901, end: 20250901
  2. PREGABALIN [Suspect]
     Active Substance: PREGABALIN
     Indication: Product used for unknown indication
     Dosage: 12 DF, QD
     Dates: start: 20250901, end: 20250901
  3. PIPAMPERONE HYDROCHLORIDE [Suspect]
     Active Substance: PIPAMPERONE HYDROCHLORIDE
     Indication: Product used for unknown indication
     Dosage: 2 DF, QD
     Dates: start: 20250901, end: 20250901
  4. AMANTADINE HYDROCHLORIDE [Suspect]
     Active Substance: AMANTADINE HYDROCHLORIDE
     Indication: Product used for unknown indication
     Dosage: 4 DF, QD
     Dates: start: 20250901, end: 20250901
  5. PEROSPIRONE HYDROCHLORIDE [Concomitant]
     Active Substance: PEROSPIRONE HYDROCHLORIDE
     Indication: Product used for unknown indication

REACTIONS (4)
  - Depressed level of consciousness [Recovered/Resolved]
  - Somnolence [Recovering/Resolving]
  - Toxicity to various agents [Recovering/Resolving]
  - Intentional product misuse [Unknown]

NARRATIVE: CASE EVENT DATE: 20250901
